FAERS Safety Report 8113430-1 (Version None)
Quarter: 2012Q1

REPORT INFORMATION
  Report Type: 
  Country: None (occurrence: None)
  Receive Date: 20120203
  Receipt Date: 20120201
  Transmission Date: 20120608
  Serious: No
  Sender: FDA-Public Use
  Company Number: US-TEVA-320624USA

PATIENT

DRUGS (1)
  1. PROAIR HFA [Suspect]
     Route: 055
     Dates: start: 20120101

REACTIONS (1)
  - DRUG INEFFECTIVE [None]
